FAERS Safety Report 19827187 (Version 1)
Quarter: 2021Q3

REPORT INFORMATION
  Report Type: Spontaneous
  Country: US (occurrence: US)
  Receive Date: 20210914
  Receipt Date: 20210914
  Transmission Date: 20211014
  Serious: Yes (Death)
  Sender: FDA-Public Use
  Company Number: None

PATIENT
  Age: 54 Year
  Sex: Male

DRUGS (5)
  1. LAMIVUDINE. [Suspect]
     Active Substance: LAMIVUDINE
     Route: 048
  2. TENOFOVIR 300MG [Concomitant]
     Active Substance: TENOFOVIR DISOPROXIL
  3. LAMIVUDINE 150MG [Concomitant]
     Active Substance: LAMIVUDINE
  4. TENOFOVIR DISOPROXIL FUMARATE TABLET [Suspect]
     Active Substance: TENOFOVIR DISOPROXIL FUMARATE
     Indication: HIV INFECTION
     Dosage: ?          OTHER FREQUENCY:WEEKLY ON MONDAYS;?
     Route: 048
  5. TIVICAY [Concomitant]
     Active Substance: DOLUTEGRAVIR SODIUM

REACTIONS (1)
  - Death [None]

NARRATIVE: CASE EVENT DATE: 20210912
